FAERS Safety Report 8225949-3 (Version None)
Quarter: 2012Q1

REPORT INFORMATION
  Report Type: 
  Country: None (occurrence: None)
  Receive Date: 20120321
  Receipt Date: 20120307
  Transmission Date: 20120608
  Serious: Yes (Hospitalization, Other)
  Sender: FDA-Public Use
  Company Number: US-PFIZER INC-2010064287

PATIENT
  Sex: Male

DRUGS (19)
  1. ABIRATERONE ACETATE [Suspect]
     Indication: PROSTATE CANCER METASTATIC
     Dosage: 1000 MG, IN 1 DAY
     Route: 048
     Dates: start: 20091208, end: 20100414
  2. MULTI-VITAMINS [Concomitant]
     Indication: MEDICAL DIET
     Dosage: 1 DOSE(S), IN 1 DAY
     Route: 048
     Dates: start: 19990101
  3. LUPRON [Concomitant]
     Indication: PROSTATE CANCER
     Dosage: 30 MG, IN 4 MONTH
     Route: 030
     Dates: start: 20091208
  4. ZOMETA [Concomitant]
     Indication: CANCER PAIN
     Dosage: 4 MG, IN 4 MONTH
     Route: 042
     Dates: start: 20090507
  5. IBUPROFEN TABLETS [Suspect]
     Indication: ARTHRITIS
  6. PREDNISONE [Suspect]
     Indication: PROSTATE CANCER METASTATIC
     Dosage: 5 MG, 2X/DAY
     Route: 048
     Dates: start: 20091209
  7. ACETAMINOPHEN [Concomitant]
     Indication: HEADACHE
  8. ALL OTHER THERAPEUTIC PRODUCTS [Concomitant]
     Indication: MEDICAL DIET
     Dosage: UNK, 1X/DAY
     Route: 048
     Dates: start: 19990101
  9. IBUPROFEN TABLETS [Suspect]
     Indication: HEADACHE
  10. IBUPROFEN TABLETS [Suspect]
     Indication: PAIN
     Dosage: 2 DOSE(S), IN 1 AS NECESSARY
     Route: 048
     Dates: start: 20060801, end: 20100321
  11. PLACEBO [Suspect]
     Indication: PROSTATE CANCER METASTATIC
     Dosage: 1000 MG, IN 1 DAY
     Route: 048
     Dates: start: 20091208
  12. ACETAMINOPHEN [Concomitant]
     Indication: ARTHRALGIA
     Dosage: 2 DOSE(S), IN 1 AS NECESSARY
     Route: 048
     Dates: start: 20090801
  13. VITAMIN D [Concomitant]
     Indication: MEDICAL DIET
     Dosage: 2000 IU, IN 1 DAY
     Route: 048
     Dates: start: 20081215
  14. ACETAMINOPHEN [Concomitant]
     Indication: BACK PAIN
  15. CALCIUM [Concomitant]
     Indication: MEDICAL DIET
     Dosage: 500 MG, IN 1 DAY
     Route: 048
     Dates: start: 20081215
  16. GREEN TEA EXTRACT [Concomitant]
     Indication: MEDICAL DIET
     Dosage: 2 DOSE(S), IN 1 DAY
     Route: 048
     Dates: start: 20091101
  17. ACETAMINOPHEN [Concomitant]
  18. FISH OIL [Concomitant]
     Indication: MEDICAL DIET
     Dosage: 2 G, IN 1 DAY
     Route: 048
     Dates: start: 20090308
  19. FLUOXETINE [Concomitant]
     Indication: ANXIETY
     Dosage: 40 MG, IN 1 DAY
     Route: 048
     Dates: start: 20100213

REACTIONS (1)
  - GASTROOESOPHAGEAL REFLUX DISEASE [None]
